FAERS Safety Report 13155762 (Version 1)
Quarter: 2017Q1

REPORT INFORMATION
  Report Type: Spontaneous
  Country: US (occurrence: US)
  Receive Date: 20170126
  Receipt Date: 20170126
  Transmission Date: 20170428
  Serious: No
  Sender: FDA-Public Use
  Company Number: US-ROCHE-1378602

PATIENT
  Sex: Male

DRUGS (1)
  1. VALIUM [Suspect]
     Active Substance: DIAZEPAM
     Indication: PRODUCT USED FOR UNKNOWN INDICATION
     Route: 065

REACTIONS (15)
  - Back injury [Unknown]
  - Back disorder [Unknown]
  - Local swelling [Unknown]
  - Cardiovascular insufficiency [Unknown]
  - Rhinorrhoea [Unknown]
  - Gastric disorder [Unknown]
  - Ear infection [Unknown]
  - Dyspepsia [Unknown]
  - Complication of device insertion [Unknown]
  - Back pain [Unknown]
  - Intervertebral disc protrusion [Unknown]
  - Nasopharyngitis [Unknown]
  - Therapeutic response decreased [Unknown]
  - Migraine [Unknown]
  - Atrophy [Unknown]

NARRATIVE: CASE EVENT DATE: 1989
